FAERS Safety Report 7493293-8 (Version None)
Quarter: 2011Q2

REPORT INFORMATION
  Report Type: 
  Country: None (occurrence: None)
  Receive Date: 20110513
  Receipt Date: 20110428
  Transmission Date: 20111010
  Serious: Yes (Hospitalization)
  Sender: FDA-Public Use
  Company Number: 014653

PATIENT
  Sex: Female

DRUGS (22)
  1. SOFALCONE [Concomitant]
  2. ETIZOLAM [Concomitant]
  3. BERAPROST SODIUM [Concomitant]
  4. TRIAZOLAM [Concomitant]
  5. KETOPROFEN [Concomitant]
  6. SERTRALINE HYDROCHLORIDE [Concomitant]
  7. FOLIC ACID [Concomitant]
  8. ATORVASTATIN CALCIUM [Concomitant]
  9. LITHIUM CARBONATE [Concomitant]
  10. IMIDAPRIL HYDROCHLORIDE [Concomitant]
  11. CARBAMAZEPINE [Concomitant]
  12. MILNACIPRAN HYDROCHLORIDE [Concomitant]
  13. METHOTREXATE [Concomitant]
  14. MELOXICAM [Concomitant]
  15. SULPIRIDE [Concomitant]
  16. FERROUS SULFATE TAB [Concomitant]
  17. ADONIS VERNALIS EXTRACT [Concomitant]
  18. MECOBALAMIN [Concomitant]
  19. CIMZIA [Suspect]
     Indication: RHEUMATOID ARTHRITIS
     Dosage: 200 MG, C870-041 SUBCUTANEOUS; 400 MG 1X/MONTH SUBCUTANEOSU; SUBCUTANEOUS
     Route: 058
     Dates: start: 20110401
  20. CIMZIA [Suspect]
     Indication: RHEUMATOID ARTHRITIS
     Dosage: 200 MG, C870-041 SUBCUTANEOUS; 400 MG 1X/MONTH SUBCUTANEOSU; SUBCUTANEOUS
     Route: 058
     Dates: start: 20090416, end: 20091015
  21. CIMZIA [Suspect]
     Indication: RHEUMATOID ARTHRITIS
     Dosage: 200 MG, C870-041 SUBCUTANEOUS; 400 MG 1X/MONTH SUBCUTANEOSU; SUBCUTANEOUS
     Route: 058
     Dates: start: 20091029, end: 20110101
  22. SENNOSIDE /00571902/ [Concomitant]

REACTIONS (10)
  - CONCOMITANT DISEASE PROGRESSION [None]
  - SPEECH DISORDER [None]
  - CONDITION AGGRAVATED [None]
  - SOMATOFORM DISORDER [None]
  - APATHY [None]
  - ABNORMAL BEHAVIOUR [None]
  - DEMENTIA [None]
  - MENTAL IMPAIRMENT [None]
  - BLOOD THYROID STIMULATING HORMONE INCREASED [None]
  - RHEUMATOID ARTHRITIS [None]
